FAERS Safety Report 8260349-1 (Version None)
Quarter: 2012Q2

REPORT INFORMATION
  Report Type: 
  Country: None (occurrence: None)
  Receive Date: 20120404
  Receipt Date: 20120322
  Transmission Date: 20120825
  Serious: Yes (Hospitalization)
  Sender: FDA-Public Use
  Company Number: FR-ELI_LILLY_AND_COMPANY-FR200911000394

PATIENT
  Age: 43 Year
  Sex: Male

DRUGS (10)
  1. ACETAMINOPHEN [Concomitant]
  2. SUBUTEX [Concomitant]
     Dosage: 2 MG, UNK
  3. STERDEX [Concomitant]
  4. COPEGUS [Concomitant]
     Indication: HEPATITIS C
     Dosage: 200 MG, UNK
     Route: 048
  5. PEGASYS [Concomitant]
     Indication: HEPATITIS C
     Dosage: 180 UG, UNK
     Route: 042
  6. OFLOXACIN [Concomitant]
     Indication: PROSTATITIS
     Dosage: 2 MG, UNK
     Route: 048
     Dates: start: 20090722, end: 20090813
  7. CLONAZEPAM [Concomitant]
     Dosage: 2 MG, UNK
     Route: 048
  8. SUBUTEX [Concomitant]
     Dosage: 8 MG, UNK
  9. ZYPREXA [Suspect]
     Indication: MENTAL DISORDER
     Dosage: UNK
     Route: 048
     Dates: start: 20090801, end: 20090801
  10. SUBUTEX [Concomitant]
     Dosage: 12 MG, QD

REACTIONS (2)
  - DRUG RASH WITH EOSINOPHILIA AND SYSTEMIC SYMPTOMS [None]
  - ERYTHEMA [None]
